FAERS Safety Report 5639517-0 (Version None)
Quarter: 2008Q1

REPORT INFORMATION
  Report Type: 
  Country: None (occurrence: None)
  Receive Date: 20080226
  Receipt Date: 20080218
  Transmission Date: 20080703
  Serious: Yes (Other)
  Sender: FDA-Public Use
  Company Number: US-GILEAD-2008-0015426

PATIENT
  Age: 42 Day
  Sex: Female
  Weight: 3.8 kg

DRUGS (3)
  1. TENOFOVIR [Suspect]
     Indication: PROPHYLAXIS AGAINST HIV INFECTION
     Route: 048
     Dates: start: 20071208, end: 20071208
  2. EMTRICITABINE [Suspect]
     Indication: PROPHYLAXIS AGAINST HIV INFECTION
     Route: 048
     Dates: start: 20071208, end: 20071208
  3. AZT [Suspect]
     Indication: PROPHYLAXIS AGAINST HIV INFECTION

REACTIONS (1)
  - NEUTROPENIA [None]
